FAERS Safety Report 23480376 (Version 1)
Quarter: 2024Q1

REPORT INFORMATION
  Report Type: Spontaneous
  Country: GB (occurrence: GB)
  Receive Date: 20240205
  Receipt Date: 20240205
  Transmission Date: 20240409
  Serious: No
  Sender: FDA-Public Use
  Company Number: None

PATIENT
  Age: 66 Year
  Sex: Male
  Weight: 82 kg

DRUGS (8)
  1. EZETIMIBE [Suspect]
     Active Substance: EZETIMIBE
     Indication: Product used for unknown indication
     Dosage: 10 MILLIGRAM, QD (ONE DAY, TABLET)
     Route: 065
     Dates: start: 20230602
  2. AMLODIPINE [Concomitant]
     Active Substance: AMLODIPINE BESYLATE
     Indication: Product used for unknown indication
     Dosage: 1 DOSAGE FORM, QD (ONE DAY)
     Route: 065
     Dates: start: 20221219
  3. AMOXICILLIN [Concomitant]
     Active Substance: AMOXICILLIN
     Indication: Product used for unknown indication
     Dosage: 3 DOSAGE FORM, QD (ONE DAY)
     Route: 065
     Dates: start: 20230901
  4. DOXYCYCLINE [Concomitant]
     Active Substance: DOXYCYCLINE
     Indication: Product used for unknown indication
     Dosage: 2 DOSAGE FORM, QD (ONE DAY)
     Route: 065
     Dates: start: 20230823, end: 20230830
  5. KETOCONAZOLE [Concomitant]
     Active Substance: KETOCONAZOLE
     Indication: Product used for unknown indication
     Dosage: 2 DOSAGE FORM, ONCE WEEKLY, (WASH HAIR AND BODY, TH...)
     Route: 065
     Dates: start: 20230606, end: 20230704
  6. OTOMIZE [Concomitant]
     Indication: Product used for unknown indication
     Dosage: 3 DOSAGE FORM, QD (ONE DAY), EAR SPRAY
     Route: 065
     Dates: start: 20230822
  7. VENLAFAXINE [Concomitant]
     Active Substance: VENLAFAXINE HYDROCHLORIDE
     Indication: Product used for unknown indication
     Dosage: 1 DOSAGE FORM, QD (ONE DAY)
     Route: 065
     Dates: start: 20221219
  8. Zerobase [Concomitant]
     Indication: Dry skin
     Dosage: 1 DOSAGE FORM, PRN (AS NECESSARY)
     Route: 065
     Dates: start: 20221219

REACTIONS (1)
  - Myalgia [Recovered/Resolved]

NARRATIVE: CASE EVENT DATE: 20230901
